FAERS Safety Report 18285875 (Version 1)
Quarter: 2020Q3

REPORT INFORMATION
  Report Type: Report from Study
  Country: IT (occurrence: IT)
  Receive Date: 20200919
  Receipt Date: 20200919
  Transmission Date: 20201103
  Serious: Yes (Hospitalization)
  Sender: FDA-Public Use
  Company Number: IT-ACCORD-201639

PATIENT
  Age: 75 Year
  Sex: Female

DRUGS (3)
  1. NALTREXONE [Suspect]
     Active Substance: NALTREXONE
     Route: 048
     Dates: start: 20200825, end: 20200825
  2. SLOWMET [Concomitant]
     Active Substance: METFORMIN HYDROCHLORIDE
  3. TAVOR (LORAZEPAM) [Suspect]
     Active Substance: LORAZEPAM
     Indication: PRODUCT USED FOR UNKNOWN INDICATION
     Dosage: STRENGTH:  2.5 MG
     Route: 048

REACTIONS (2)
  - Altered state of consciousness [Unknown]
  - Drug abuse [Unknown]

NARRATIVE: CASE EVENT DATE: 20200825
